FAERS Safety Report 7029509-1 (Version None)
Quarter: 2010Q4

REPORT INFORMATION
  Report Type: 
  Country: None (occurrence: None)
  Receive Date: 20101005
  Receipt Date: 20100923
  Transmission Date: 20110411
  Serious: No
  Sender: FDA-Public Use
  Company Number: US-ELI_LILLY_AND_COMPANY-US201008008502

PATIENT
  Sex: Male
  Weight: 76.19 kg

DRUGS (11)
  1. CIALIS [Suspect]
     Indication: ERECTILE DYSFUNCTION
     Dosage: 20 MG, AS NEEDED
     Dates: start: 20100802, end: 20100806
  2. PERINDOPRIL [Concomitant]
  3. ZANTAC [Concomitant]
     Dosage: 0.25 MG, 2/D
  4. FOLIC ACID [Concomitant]
  5. TESTOSTERON /00103102/ [Concomitant]
  6. VITAMIN A [Concomitant]
  7. VITAMIN E [Concomitant]
  8. VITAMIN D [Concomitant]
  9. ASCORBIC ACID [Concomitant]
  10. VITAMIN K TAB [Concomitant]
  11. ASPIRIN [Concomitant]
     Dosage: UNK, DAILY (1/D)

REACTIONS (3)
  - CYANOPSIA [None]
  - DRY EYE [None]
  - OCULAR HYPERAEMIA [None]
